FAERS Safety Report 23461767 (Version 1)
Quarter: 2024Q1

REPORT INFORMATION
  Report Type: Spontaneous
  Country: US (occurrence: US)
  Receive Date: 20240131
  Receipt Date: 20240131
  Transmission Date: 20240410
  Serious: No
  Sender: FDA-Public Use
  Company Number: US-BAUSCHBL-2024BNL001036

PATIENT
  Age: 81 Year
  Sex: Female

DRUGS (2)
  1. XIIDRA [Suspect]
     Active Substance: LIFITEGRAST
     Indication: Dry eye
     Route: 047
     Dates: start: 20230819, end: 202310
  2. XIIDRA [Suspect]
     Active Substance: LIFITEGRAST
     Route: 047
     Dates: start: 20240123, end: 202401

REACTIONS (5)
  - Eye irritation [Not Recovered/Not Resolved]
  - Product residue present [Unknown]
  - Lacrimation increased [Unknown]
  - Asthenopia [Unknown]
  - Rash vesicular [Unknown]

NARRATIVE: CASE EVENT DATE: 20230101
